FAERS Safety Report 13970070 (Version 1)
Quarter: 2017Q3

REPORT INFORMATION
  Report Type: Report from Study
  Country: ES (occurrence: ES)
  Receive Date: 20170914
  Receipt Date: 20170914
  Transmission Date: 20171128
  Serious: Yes (Hospitalization, Other)
  Sender: FDA-Public Use
  Company Number: ES-VIIV HEALTHCARE LIMITED-ES2017140438

PATIENT
  Age: 55 Year
  Sex: Female

DRUGS (4)
  1. NORVIR [Concomitant]
     Active Substance: RITONAVIR
     Indication: HIV INFECTION
     Dosage: 100 MG, 0-0-1
     Route: 048
     Dates: start: 20160301
  2. PREZISTA [Concomitant]
     Active Substance: DARUNAVIR ETHANOLATE
     Indication: HIV INFECTION
     Dosage: 150 MG, 0-0-1
     Route: 048
     Dates: start: 20160301
  3. ABACAVIR SULFATE + LAMIVUDINE [Suspect]
     Active Substance: ABACAVIR SULFATE\LAMIVUDINE
     Indication: HIV TEST POSITIVE
     Dosage: 600 MG, 0-0-1
     Route: 048
     Dates: start: 20160301, end: 20170201
  4. ABACAVIR SULFATE + LAMIVUDINE [Suspect]
     Active Substance: ABACAVIR SULFATE\LAMIVUDINE
     Dosage: 300 MG, 0-0-1
     Route: 048
     Dates: start: 20160301, end: 20170201

REACTIONS (1)
  - Fanconi syndrome acquired [Recovered/Resolved with Sequelae]

NARRATIVE: CASE EVENT DATE: 20170131
